FAERS Safety Report 7013013-0 (Version None)
Quarter: 2010Q3

REPORT INFORMATION
  Report Type: 
  Country: None (occurrence: None)
  Receive Date: 20100924
  Receipt Date: 20100914
  Transmission Date: 20110219
  Serious: Yes (Hospitalization, Other)
  Sender: FDA-Public Use
  Company Number: CH-PFIZER INC-2010115803

PATIENT
  Age: 78 Year
  Sex: Female

DRUGS (12)
  1. XANAX [Suspect]
     Indication: INTENTIONAL SELF-INJURY
     Dosage: UNK
     Route: 048
     Dates: start: 20090323, end: 20090323
  2. ALDOZONE [Suspect]
     Indication: ESSENTIAL HYPERTENSION
     Dosage: 1 DF, 1X/DAY
     Route: 048
  3. VALIUM [Suspect]
     Indication: INTENTIONAL SELF-INJURY
     Dosage: UNK
     Route: 048
     Dates: start: 20090323, end: 20090323
  4. TEGRETOL [Suspect]
     Indication: EPILEPSY
     Dosage: 300 MG, 2X/DAY
     Route: 048
  5. SAROTEN [Suspect]
     Indication: DEPRESSION
     Dosage: 25 MG, 1X/DAY
     Route: 048
  6. XANAX [Concomitant]
     Dosage: 0.5 MG, 1X/DAY
     Route: 048
  7. NEXIUM [Concomitant]
     Dosage: 20 MG, 1X/DAY
     Route: 048
  8. ASPIRIN [Concomitant]
     Dosage: 100 MG, 1X/DAY
     Route: 048
  9. SYMFONA N [Concomitant]
     Dosage: 60 MG, 2X/DAY
     Route: 048
  10. FERRO SANOL [Concomitant]
     Dosage: 100 MG, 1X/DAY
     Route: 048
  11. MAGNESIOCARD [Concomitant]
     Dosage: 1 DF, 1X/DAY
     Route: 048
     Dates: end: 20100101
  12. PARAGOL [Concomitant]
     Dosage: 20 ML, ALTERNATE DAY
     Route: 048
     Dates: end: 20100101

REACTIONS (7)
  - HYPOCHLORAEMIA [None]
  - HYPONATRAEMIA [None]
  - INTENTIONAL OVERDOSE [None]
  - SEDATION [None]
  - SPEECH DISORDER [None]
  - URINARY RETENTION [None]
  - VOMITING [None]
